FAERS Safety Report 9107275 (Version 1)
Quarter: 2013Q1

REPORT INFORMATION
  Report Type: Report from Study
  Country: FR (occurrence: FR)
  Receive Date: 20130221
  Receipt Date: 20130221
  Transmission Date: 20140127
  Serious: Yes (Hospitalization, Other)
  Sender: FDA-Public Use
  Company Number: FR-BRISTOL-MYERS SQUIBB COMPANY-16394983

PATIENT
  Age: 65 Year
  Sex: Male

DRUGS (12)
  1. IPILIMUMAB [Suspect]
     Indication: PROSTATE CANCER
     Route: 042
     Dates: start: 20111117
  2. LEUPRORELIN ACETATE [Concomitant]
     Route: 058
     Dates: start: 200403
  3. IRBESARTAN [Concomitant]
     Route: 048
     Dates: start: 1996
  4. ACUILIX [Concomitant]
     Dosage: 1DF:0.5TAB
     Route: 048
     Dates: start: 201007
  5. HAMAMELIS VIRGINIANA [Concomitant]
     Route: 048
     Dates: start: 1996
  6. PARACETAMOL [Concomitant]
     Dosage: 1G:NOV09-10NOV2011?1TAB:10NOV11 TO ONG
     Route: 048
     Dates: start: 200911
  7. KETOPROFENE [Concomitant]
     Route: 048
     Dates: start: 20111117
  8. LORATADINE [Concomitant]
     Route: 048
     Dates: start: 20120119
  9. DIOSMECTITE [Concomitant]
     Dosage: 1DF: 1BAG
     Route: 048
     Dates: start: 20111117
  10. LOPERAMIDE [Concomitant]
     Route: 048
     Dates: start: 20111117
  11. PANTOPRAZOLE [Concomitant]
     Route: 048
     Dates: start: 20111117, end: 20120120
  12. ZOPICLONE [Concomitant]
     Dosage: 1DF:0.5TAB
     Route: 048
     Dates: start: 20111117

REACTIONS (2)
  - Diarrhoea [Recovered/Resolved]
  - Decreased appetite [Recovered/Resolved]
